FAERS Safety Report 4967192-7 (Version None)
Quarter: 2006Q2

REPORT INFORMATION
  Report Type: 
  Country: None (occurrence: None)
  Receive Date: 20060410
  Receipt Date: 20060327
  Transmission Date: 20061013
  Serious: Yes (Other)
  Sender: FDA-Public Use
  Company Number: 2006AC00660

PATIENT
  Age: 34 Year
  Sex: Male

DRUGS (1)
  1. ZOLMITRIPTAN [Suspect]
     Indication: MIGRAINE
     Dosage: TREATED FOR 6 YEARS.

REACTIONS (1)
  - RENAL INFARCT [None]
